FAERS Safety Report 10597342 (Version 2)
Quarter: 2014Q4

REPORT INFORMATION
  Report Type: Spontaneous
  Country: US (occurrence: US)
  Receive Date: 20141121
  Receipt Date: 20141205
  Transmission Date: 20150529
  Serious: Yes (Hospitalization, Other)
  Sender: FDA-Public Use
  Company Number: US-PAR PHARMACEUTICAL, INC-2014SCPR009497

PATIENT

DRUGS (2)
  1. DIVALPROEX SODIUM ER [Suspect]
     Active Substance: DIVALPROEX SODIUM
     Indication: DEPRESSION
     Dosage: UNK UNK, UNKNOWN
     Route: 065
  2. DIVALPROEX SODIUM ER [Suspect]
     Active Substance: DIVALPROEX SODIUM
     Dosage: 1000 MG, OD
     Route: 065
     Dates: start: 2009

REACTIONS (10)
  - Drug level decreased [Unknown]
  - Product use issue [Unknown]
  - Joint injury [Unknown]
  - Gait disturbance [Unknown]
  - Skeletal injury [Unknown]
  - Limb injury [Unknown]
  - Balance disorder [Unknown]
  - Malaise [Unknown]
  - Walking aid user [Unknown]
  - Syncope [Unknown]

NARRATIVE: CASE EVENT DATE: 2009
